FAERS Safety Report 16551395 (Version 1)
Quarter: 2019Q3

REPORT INFORMATION
  Report Type: Spontaneous
  Country: US (occurrence: US)
  Receive Date: 20190710
  Receipt Date: 20190710
  Transmission Date: 20191004
  Serious: No
  Sender: FDA-Public Use
  Company Number: US-TEVA-2019-US-1066394

PATIENT
  Sex: Female

DRUGS (1)
  1. CLARAVIS [Suspect]
     Active Substance: ISOTRETINOIN
     Indication: ACNE
     Route: 065
     Dates: start: 20190607

REACTIONS (4)
  - Pruritus [Unknown]
  - Erythema [Unknown]
  - Formication [Unknown]
  - Dry eye [Unknown]

NARRATIVE: CASE EVENT DATE: 201906
